FAERS Safety Report 16659373 (Version 1)
Quarter: 2019Q3

REPORT INFORMATION
  Report Type: Spontaneous
  Country: FR (occurrence: FR)
  Receive Date: 20190802
  Receipt Date: 20190802
  Transmission Date: 20191004
  Serious: Yes (Life-Threatening, Other)
  Sender: FDA-Public Use
  Company Number: FR-AUROBINDO-AUR-APL-2019-044431

PATIENT

DRUGS (2)
  1. FLANID [Suspect]
     Active Substance: TIAPROFENIC ACID
     Indication: HEADACHE
     Dosage: 200 MILLIGRAM,1 TOTAL
     Route: 048
     Dates: start: 201810
  2. PARACETAMOL [Suspect]
     Active Substance: ACETAMINOPHEN
     Indication: HEADACHE
     Dosage: 1 GRAM,1 TOTAL
     Route: 048
     Dates: start: 201810

REACTIONS (1)
  - Anaphylactic shock [Recovered/Resolved]

NARRATIVE: CASE EVENT DATE: 201810
